FAERS Safety Report 11415843 (Version 1)
Quarter: 2015Q3

REPORT INFORMATION
  Report Type: Spontaneous
  Country: US (occurrence: None)
  Receive Date: 20150824
  Receipt Date: 20150824
  Transmission Date: 20151125
  Serious: Yes (Hospitalization, Other)
  Sender: FDA-Public Use
  Company Number: None

PATIENT
  Age: 44 Year
  Sex: Male
  Weight: 90.72 kg

DRUGS (13)
  1. CLINDAMYCIN CLINDAMYCIN [Suspect]
     Active Substance: CLINDAMYCIN PHOSPHATE
     Indication: ANAL ABSCESS
     Route: 048
  2. BENTYL [Concomitant]
     Active Substance: DICYCLOMINE HYDROCHLORIDE
  3. FLAGYL [Concomitant]
     Active Substance: METRONIDAZOLE\METRONIDAZOLE HYDROCHLORIDE
  4. GAS-X [Concomitant]
     Active Substance: DIMETHICONE
  5. TOPROL XL [Concomitant]
     Active Substance: METOPROLOL SUCCINATE
  6. TOPIRAMATE. [Concomitant]
     Active Substance: TOPIRAMATE
  7. ZOFRAN [Concomitant]
     Active Substance: ONDANSETRON HYDROCHLORIDE
  8. FLECANIDE [Concomitant]
  9. FLORESTAR [Concomitant]
  10. COLESTIPOL [Concomitant]
     Active Substance: COLESTIPOL
  11. OMEPRAZOLE. [Concomitant]
     Active Substance: OMEPRAZOLE
  12. CELEXA [Concomitant]
     Active Substance: CITALOPRAM HYDROBROMIDE
  13. PACEMAKER [Concomitant]

REACTIONS (8)
  - Dehydration [None]
  - Abdominal distension [None]
  - White blood cell count increased [None]
  - Clostridium test positive [None]
  - Diarrhoea [None]
  - Abdominal pain upper [None]
  - Discomfort [None]
  - Pyrexia [None]

NARRATIVE: CASE EVENT DATE: 20150815
